FAERS Safety Report 7405647 (Version 1)
Quarter: 2020Q3

REPORT INFORMATION
  Report Type: Spontaneous
  Country: DE (occurrence: DE)
  Receive Date: 20100601
  Receipt Date: 20100601
  Transmission Date: 20201104
  Serious: Yes (Other)
  Sender: FDA-Public Use
  Company Number: DE-ROCHE-705740

PATIENT
  Age: 57 Year
  Sex: Female
  Weight: 54 kg

DRUGS (3)
  1. BETA?BLOCKER [Concomitant]
  2. IBANDRONIC ACID. [Suspect]
     Active Substance: IBANDRONIC ACID
     Indication: OSTEOPOROSIS
     Dosage: GIVEN ONCE
     Route: 042
     Dates: start: 20091112, end: 20091112
  3. TAMOXIFEN CITRATE. [Concomitant]
     Active Substance: TAMOXIFEN CITRATE
     Indication: BREAST CANCER
     Dates: start: 20081205

REACTIONS (4)
  - Polyneuropathy [Not Recovered/Not Resolved]
  - Panic attack [Unknown]
  - Sleep disorder [Unknown]
  - Blood pressure increased [None]

NARRATIVE: CASE EVENT DATE: 20091201
